FAERS Safety Report 7810604-1 (Version None)
Quarter: 2011Q4

REPORT INFORMATION
  Report Type: 
  Country: None (occurrence: None)
  Receive Date: 20111013
  Receipt Date: 20111004
  Transmission Date: 20120403
  Serious: Yes (Hospitalization)
  Sender: FDA-Public Use
  Company Number: US-BIOGENIDEC-2011BI035561

PATIENT
  Age: 71 Year
  Sex: Male

DRUGS (9)
  1. VYTORIN [Concomitant]
  2. TYSABRI [Suspect]
     Indication: MULTIPLE SCLEROSIS
     Route: 042
     Dates: start: 20090810, end: 20110812
  3. PREVACID [Concomitant]
  4. ALTACE [Concomitant]
  5. MIRAPEX [Concomitant]
  6. COREG [Concomitant]
  7. TYSABRI [Suspect]
     Route: 042
  8. BACLOFEN [Concomitant]
  9. VALIUM [Concomitant]

REACTIONS (1)
  - URINARY TRACT INFECTION [None]
